FAERS Safety Report 24438429 (Version 6)
Quarter: 2025Q1

REPORT INFORMATION
  Report Type: Spontaneous
  Country: US (occurrence: US)
  Receive Date: 20241015
  Receipt Date: 20250306
  Transmission Date: 20250409
  Serious: Yes (Other)
  Sender: PFIZER
  Company Number: US-PFIZER INC-202300299145

PATIENT
  Age: 72 Year
  Sex: Female

DRUGS (3)
  1. IBRANCE [Suspect]
     Active Substance: PALBOCICLIB
     Indication: Neoplasm malignant
     Dates: start: 2022
  2. IBRANCE [Suspect]
     Active Substance: PALBOCICLIB
     Indication: Breast cancer
  3. LETROZOLE [Suspect]
     Active Substance: LETROZOLE
     Dates: start: 2022

REACTIONS (14)
  - Neutropenia [Unknown]
  - Immune system disorder [Unknown]
  - White blood cell count decreased [Unknown]
  - Illness [Not Recovered/Not Resolved]
  - Nasopharyngitis [Unknown]
  - Fatigue [Unknown]
  - Pain [Unknown]
  - Blood pressure increased [Recovering/Resolving]
  - Sleep disorder [Unknown]
  - Feeling abnormal [Unknown]
  - Skin odour abnormal [Unknown]
  - Impaired quality of life [Unknown]
  - Menopause [Unknown]
  - Condition aggravated [Unknown]
